FAERS Safety Report 11395900 (Version 1)
Quarter: 2015Q3

REPORT INFORMATION
  Report Type: Spontaneous
  Country: US (occurrence: None)
  Receive Date: 20150818
  Receipt Date: 20150818
  Transmission Date: 20151125
  Serious: Yes (Other)
  Sender: FDA-Public Use
  Company Number: None

PATIENT
  Age: 79 Year
  Sex: Male
  Weight: 54.43 kg

DRUGS (2)
  1. ZIPRASIDONE HYDROCHLORIDE CAPS 20MG [Suspect]
     Active Substance: ZIPRASIDONE HYDROCHLORIDE
     Indication: DEPRESSION
     Dosage: 1 PILL
     Route: 048
     Dates: start: 20150815, end: 20150817
  2. ZIPRASIDONE HYDROCHLORIDE CAPS 20MG [Suspect]
     Active Substance: ZIPRASIDONE HYDROCHLORIDE
     Indication: ANXIETY
     Dosage: 1 PILL
     Route: 048
     Dates: start: 20150815, end: 20150817

REACTIONS (5)
  - Tremor [None]
  - Product quality issue [None]
  - Anxiety [None]
  - Parkinsonism [None]
  - Product substitution issue [None]

NARRATIVE: CASE EVENT DATE: 20150815
